FAERS Safety Report 6186472-3 (Version None)
Quarter: 2009Q2

REPORT INFORMATION
  Report Type: 
  Country: None (occurrence: None)
  Receive Date: 20090512
  Receipt Date: 20090505
  Transmission Date: 20091009
  Serious: Yes (Hospitalization, Other)
  Sender: FDA-Public Use
  Company Number: US-RANBAXY-2009US-23752

PATIENT

DRUGS (1)
  1. ISOTRETINOIN [Suspect]
     Indication: ACNE
     Dosage: 40 MG, BID
     Route: 048
     Dates: start: 20081027, end: 20090425

REACTIONS (5)
  - ALCOHOL POISONING [None]
  - CHAPPED LIPS [None]
  - DEHYDRATION [None]
  - FLUSHING [None]
  - LOSS OF CONSCIOUSNESS [None]
